FAERS Safety Report 5810353-5 (Version None)
Quarter: 2008Q3

REPORT INFORMATION
  Report Type: 
  Country: None (occurrence: None)
  Receive Date: 20080715
  Receipt Date: 20080522
  Transmission Date: 20090109
  Serious: No
  Sender: FDA-Public Use
  Company Number: A0729223A

PATIENT
  Sex: Female

DRUGS (2)
  1. IMITREX [Suspect]
     Dosage: 25MG AS REQUIRED
     Dates: start: 20080520
  2. NO CONCURRENT MEDICATION [Concomitant]

REACTIONS (3)
  - HEADACHE [None]
  - MIGRAINE [None]
  - VOMITING [None]
